FAERS Safety Report 24222589 (Version 1)
Quarter: 2024Q3

REPORT INFORMATION
  Report Type: Spontaneous
  Country: CN (occurrence: CN)
  Receive Date: 20240819
  Receipt Date: 20240819
  Transmission Date: 20241016
  Serious: Yes (Death, Other)
  Sender: AMGEN
  Company Number: CN-AMGEN-CHNSP2024161107

PATIENT
  Age: 74 Year
  Sex: Female

DRUGS (6)
  1. FILGRASTIM [Suspect]
     Active Substance: FILGRASTIM
     Indication: Neutrophil count decreased
     Dosage: 150 MILLIGRAM, Q12H DAY -5 AND -1
     Route: 065
  2. AZACITIDINE [Concomitant]
     Active Substance: AZACITIDINE
     Indication: Myelodysplastic syndrome
     Dosage: 75 MG (MILLIGRAM)/M^2 , DAY -11 AND -5/ 75 MG (MILLIGRAM)/M^2 , DAY 1 AND 7 EVERY TWO MONTHS
     Route: 065
  3. CYTARABINE [Concomitant]
     Active Substance: CYTARABINE
     Indication: Myelodysplastic syndrome
     Dosage: 10 MG/M^2, DAY -4 AND -1
  4. ACLARUBICIN [Concomitant]
     Active Substance: ACLARUBICIN
     Indication: Myelodysplastic syndrome
     Dosage: 10 MILLIGRAM, QD DAY -4 AND -1
     Route: 065
  5. DECITABINE [Concomitant]
     Active Substance: DECITABINE
     Indication: Myelodysplastic syndrome
     Dosage: 15 MG/M^2 , DAY 1 AND DAY 5
     Route: 065
  6. VENETOCLAX [Concomitant]
     Active Substance: VENETOCLAX
     Indication: Myelodysplastic syndrome
     Route: 065

REACTIONS (4)
  - Death [Fatal]
  - Myelodysplastic syndrome [Unknown]
  - Myelosuppression [Unknown]
  - Pyrexia [Unknown]

NARRATIVE: CASE EVENT DATE: 20221024
